FAERS Safety Report 7747171-7 (Version None)
Quarter: 2011Q3

REPORT INFORMATION
  Report Type: 
  Country: None (occurrence: None)
  Receive Date: 20110913
  Receipt Date: 20110905
  Transmission Date: 20111222
  Serious: Yes (Life-Threatening)
  Sender: FDA-Public Use
  Company Number: IT-JNJFOC-20110902543

PATIENT
  Age: 52 Year
  Sex: Female

DRUGS (1)
  1. REMICADE [Suspect]
     Indication: RHEUMATOID ARTHRITIS
     Route: 042
     Dates: start: 20110531, end: 20110901

REACTIONS (4)
  - TONGUE OEDEMA [None]
  - ABDOMINAL PAIN UPPER [None]
  - HYPERSENSITIVITY [None]
  - PRESYNCOPE [None]
